FAERS Safety Report 18337086 (Version 1)
Quarter: 2020Q4

REPORT INFORMATION
  Report Type: Spontaneous
  Country: US (occurrence: US)
  Receive Date: 20201002
  Receipt Date: 20201002
  Transmission Date: 20210113
  Serious: No
  Sender: FDA-Public Use
  Company Number: US-MELINTA THERAPEUTICS, INC-US-MLNT-20-00092

PATIENT
  Age: 75 Year
  Sex: Female

DRUGS (2)
  1. ORBACTIV [Suspect]
     Active Substance: ORITAVANCIN
     Indication: OSTEOMYELITIS
  2. ORBACTIV [Suspect]
     Active Substance: ORITAVANCIN
     Indication: ENTEROCOCCAL INFECTION
     Dosage: NOT PROVIDED.
     Route: 041
     Dates: start: 201907

REACTIONS (2)
  - Off label use [Unknown]
  - Liver function test increased [Unknown]
